FAERS Safety Report 15276833 (Version 1)
Quarter: 2018Q3

REPORT INFORMATION
  Report Type: Spontaneous
  Country: AU (occurrence: AU)
  Receive Date: 20180814
  Receipt Date: 20180814
  Transmission Date: 20181010
  Serious: Yes (Hospitalization)
  Sender: FDA-Public Use
  Company Number: AU-009507513-1808AUS003136

PATIENT
  Age: 24 Year
  Sex: Male

DRUGS (1)
  1. MIRTAZAPINE. [Suspect]
     Active Substance: MIRTAZAPINE
     Dosage: 15 MG, DAILY
     Route: 048

REACTIONS (5)
  - Agitation [Unknown]
  - Dizziness [Unknown]
  - Confusional state [Unknown]
  - Lethargy [Unknown]
  - Palpitations [Unknown]
